FAERS Safety Report 23142803 (Version 1)
Quarter: 2023Q4

REPORT INFORMATION
  Report Type: Report from Study
  Country: US (occurrence: US)
  Receive Date: 20231103
  Receipt Date: 20231103
  Transmission Date: 20240110
  Serious: Yes (Other)
  Sender: FDA-Public Use
  Company Number: US-MYLANLABS-2023M1114897

PATIENT
  Age: 62 Year
  Sex: Female

DRUGS (1)
  1. MIDODRINE [Suspect]
     Active Substance: MIDODRINE
     Indication: Spinal cord injury
     Dosage: 10 MILLIGRAM
     Route: 065

REACTIONS (2)
  - Hypertension [Unknown]
  - Off label use [Unknown]
